FAERS Safety Report 8001191-6 (Version None)
Quarter: 2011Q4

REPORT INFORMATION
  Report Type: 
  Country: None (occurrence: None)
  Receive Date: 20111222
  Receipt Date: 20111212
  Transmission Date: 20120403
  Serious: Yes (Hospitalization, Other)
  Sender: FDA-Public Use
  Company Number: GB-TEVA-280487ISR

PATIENT
  Age: 72 Year
  Sex: Female

DRUGS (1)
  1. MIRTAZAPINE [Suspect]
     Indication: DEPRESSION
     Route: 048
     Dates: start: 20101222, end: 20110301

REACTIONS (3)
  - HEADACHE [None]
  - FOREIGN BODY SENSATION IN EYES [None]
  - TEMPORAL ARTERITIS [None]
